FAERS Safety Report 9308160 (Version 1)
Quarter: 2013Q2

REPORT INFORMATION
  Report Type: Spontaneous
  Country: IT (occurrence: IT)
  Receive Date: 20130524
  Receipt Date: 20130524
  Transmission Date: 20140414
  Serious: Yes (Other)
  Sender: FDA-Public Use
  Company Number: IT-PFIZER INC-2013156701

PATIENT
  Age: 19 Year
  Sex: Female

DRUGS (3)
  1. SERTRALINE HCL [Suspect]
     Indication: DEPRESSION
     Dosage: 150 MG, TOTAL
     Route: 048
     Dates: start: 20130303, end: 20130303
  2. DELORAZEPAM [Suspect]
     Indication: DEPRESSION
     Dosage: 4 MG, TOTAL
     Route: 048
     Dates: start: 20130303, end: 20130303
  3. BROMAZEPAM [Suspect]
     Indication: DEPRESSION
     Dosage: 50 MG, TOTAL
     Route: 048
     Dates: start: 20130303, end: 20130303

REACTIONS (4)
  - Drug abuse [Recovering/Resolving]
  - Suicide attempt [Recovering/Resolving]
  - Gamma-glutamyltransferase decreased [Unknown]
  - Prothrombin time prolonged [Unknown]
